FAERS Safety Report 19195122 (Version 1)
Quarter: 2021Q2

REPORT INFORMATION
  Report Type: Spontaneous
  Country: US (occurrence: US)
  Receive Date: 20210429
  Receipt Date: 20210429
  Transmission Date: 20210717
  Serious: No
  Sender: FDA-Public Use
  Company Number: US-CELGENEUS-USA-20210405431

PATIENT
  Sex: Female

DRUGS (1)
  1. ZEPOSIA [Suspect]
     Active Substance: OZANIMOD HYDROCHLORIDE
     Indication: MULTIPLE SCLEROSIS
     Dosage: .92 MILLIGRAM
     Route: 048
     Dates: start: 20210112

REACTIONS (5)
  - Blood creatine increased [Unknown]
  - Lymphocyte count decreased [Unknown]
  - Pain in extremity [Unknown]
  - Fatigue [Unknown]
  - Multiple allergies [Unknown]

NARRATIVE: CASE EVENT DATE: 2021
